FAERS Safety Report 10108884 (Version 2)
Quarter: 2014Q2

REPORT INFORMATION
  Report Type: Spontaneous
  Country: US (occurrence: None)
  Receive Date: 20140423
  Receipt Date: 20140430
  Transmission Date: 20141212
  Serious: Yes (Hospitalization)
  Sender: FDA-Public Use
  Company Number: AUR-APL-2014-04807

PATIENT
  Age: 72 Year
  Sex: Female
  Weight: 57 kg

DRUGS (13)
  1. VALACYCLOVIR [Suspect]
     Indication: PRODUCT USED FOR UNKNOWN INDICATION
  2. LANSOPRAZOLE (LANSOPRAZOLE) [Suspect]
     Indication: PRODUCT USED FOR UNKNOWN INDICATION
  3. HEPARIN SODIUM (HEPARIN SODIUM) [Suspect]
     Indication: PRODUCT USED FOR UNKNOWN INDICATION
  4. FUROSEMIDE (FUROSEMIDE) [Suspect]
     Indication: PRODUCT USED FOR UNKNOWN INDICATION
  5. LOPERAMIDE HYDROCHLORIDE [Suspect]
     Indication: PRODUCT USED FOR UNKNOWN INDICATION
  6. VELCADE (BORTEZOMIB) [Suspect]
     Indication: MANTLE CELL LYMPHOMA
     Dosage: DAYS 1, 8, 15
     Route: 058
     Dates: start: 20140127, end: 20140324
  7. RITUXIMAB (RITUXIMAB) [Suspect]
     Indication: MANTLE CELL LYMPHOMA
     Dosage: ON DAY 1 FOR UP TO 8 CYCLES
     Route: 042
     Dates: start: 20140127
  8. ACETAMINOPHEN (PARACETAMOL) [Suspect]
     Indication: PRODUCT USED FOR UNKNOWN INDICATION
  9. DIPHENHYDRAMINE (DIPHENHYDRAMINE) [Suspect]
     Indication: PRODUCT USED FOR UNKNOWN INDICATION
  10. FILGRASTIM (FILGRASTIM) [Suspect]
     Indication: PRODUCT USED FOR UNKNOWN INDICATION
  11. PERCOCET [Suspect]
     Indication: PRODUCT USED FOR UNKNOWN INDICATION
  12. NOVAMIN [Suspect]
     Indication: PRODUCT USED FOR UNKNOWN INDICATION
  13. GRANISETRON (GRANISETRON) [Suspect]
     Indication: PRODUCT USED FOR UNKNOWN INDICATION

REACTIONS (10)
  - Presyncope [None]
  - Blood creatinine increased [None]
  - Right ventricular dysfunction [None]
  - Convulsion [None]
  - Dyspnoea [None]
  - Nausea [None]
  - Visual impairment [None]
  - Dizziness [None]
  - Fall [None]
  - Eye movement disorder [None]
